FAERS Safety Report 6119885-6 (Version None)
Quarter: 2009Q1

REPORT INFORMATION
  Report Type: 
  Country: None (occurrence: None)
  Receive Date: 20090316
  Receipt Date: 20090312
  Transmission Date: 20090719
  Serious: Yes (Death)
  Sender: FDA-Public Use
  Company Number: IN-BRISTOL-MYERS SQUIBB COMPANY-14541858

PATIENT
  Age: 48 Year
  Sex: Female
  Weight: 26 kg

DRUGS (5)
  1. IXEMPRA KIT [Suspect]
     Indication: BREAST CANCER METASTATIC
     Route: 042
     Dates: start: 20090206, end: 20090206
  2. GRANISETRON [Concomitant]
     Dates: start: 20090206, end: 20090206
  3. DEXAMETHASONE [Concomitant]
     Dosage: INJECTION.
     Dates: start: 20090206, end: 20090206
  4. PHENERGAN [Concomitant]
     Dosage: INJECTION.
     Dates: start: 20090206, end: 20090206
  5. RANTAC [Concomitant]
     Dosage: INJECTION.
     Dates: start: 20090206, end: 20090206

REACTIONS (1)
  - CARDIO-RESPIRATORY ARREST [None]
